FAERS Safety Report 20210803 (Version 7)
Quarter: 2022Q3

REPORT INFORMATION
  Report Type: Report from Study
  Country: US (occurrence: US)
  Receive Date: 20211221
  Receipt Date: 20220813
  Transmission Date: 20221027
  Serious: Yes (Other)
  Sender: FDA-Public Use
  Company Number: US-NOVARTISPH-NVSC2021US286435

PATIENT
  Sex: Male

DRUGS (1)
  1. ENTRESTO [Suspect]
     Active Substance: SACUBITRIL\VALSARTAN
     Indication: Product used for unknown indication
     Dosage: UNK UNK, BID
     Route: 048

REACTIONS (15)
  - Hypertension [Not Recovered/Not Resolved]
  - Tinnitus [Unknown]
  - Malaise [Unknown]
  - Dyspnoea [Not Recovered/Not Resolved]
  - Back pain [Not Recovered/Not Resolved]
  - Abdominal discomfort [Unknown]
  - Frustration tolerance decreased [Not Recovered/Not Resolved]
  - Pain in extremity [Unknown]
  - Insomnia [Unknown]
  - Tooth disorder [Not Recovered/Not Resolved]
  - Hyperhidrosis [Unknown]
  - Fall [Unknown]
  - Wrong technique in product usage process [Unknown]
  - Product availability issue [Unknown]
  - Ear discomfort [Unknown]
